FAERS Safety Report 9519379 (Version 1)
Quarter: 2013Q1

REPORT INFORMATION
  Report Type: Spontaneous
  Country: US (occurrence: None)
  Receive Date: 20130305
  Receipt Date: 20130305
  Transmission Date: 20140127
  Serious: Yes (Other)
  Sender: FDA-Public Use
  Company Number: 163-21880-12070121

PATIENT
  Age: 73 Year
  Sex: Male

DRUGS (17)
  1. REVLIMID [Suspect]
     Indication: PLASMA CELL MYELOMA
     Dosage: 5 MG, BID X 21, PO
     Route: 048
     Dates: start: 20110406
  2. AMLODIPINE (AMLODIPINE) (TABLETS) [Concomitant]
  3. ASPIRIN (ACETYLSALICYLIC ACID) (TABLETS) [Concomitant]
  4. BENICAR (OLMESARTAN MEDOXOMIL) (TABLETS) [Concomitant]
  5. BYSTOLIC (NEBIVOLOL HYDROCHLORIDE) (TABLETS) [Concomitant]
  6. CALCIUM 500 (CALCIUM) (TABLETS) [Concomitant]
  7. CLONAZEPAM (CLONAZEPAM) (TABLETS) [Concomitant]
  8. CLONIDINE (CLONIDINE) (TABLETS) [Concomitant]
  9. FIORICET (AXOTAL (OLD FORM)) (TABLETS) [Concomitant]
  10. KLONOIN (CLONAZEPAM) (TABLETS) [Concomitant]
  11. MULTIVITAMINS (MULTIVITAMINS) (TABLETS)?? [Concomitant]
  12. OXYCODONE (OXYCODONE) (TABLETS) [Concomitant]
  13. PLAVIX (CLOPIDOGREL SULFATE) (TABLETS0 [Concomitant]
  14. VITAMIN B6 (PYRIDOXINE HYDROCHLORIDE) (TABLETS) [Concomitant]
  15. VITAMIN D (ERGOCALCIFEROL) (TABLETS) [Concomitant]
  16. VITAMIN B COMPLEX (B-KOMPLEX ^LECIVA^) (CAPSULES) [Concomitant]
  17. QVAR (BECLOMETASONE DIPROPIONATE) (AEROSOL FOR INHALATION) [Concomitant]

REACTIONS (2)
  - Bacterial disease carrier [None]
  - Bone lesion [None]
